FAERS Safety Report 9715575 (Version 1)
Quarter: 2013Q4

REPORT INFORMATION
  Report Type: Report from Study
  Country: US (occurrence: US)
  Receive Date: 20131127
  Receipt Date: 20131127
  Transmission Date: 20140711
  Serious: Yes (Other)
  Sender: FDA-Public Use
  Company Number: US-ROCHE-1306241

PATIENT
  Sex: Female
  Weight: 118.7 kg

DRUGS (2)
  1. NUTROPIN AQ [Suspect]
     Indication: BODY HEIGHT BELOW NORMAL
     Route: 058
  2. SYNTHROID [Concomitant]
     Route: 048

REACTIONS (2)
  - Drug dose omission [Unknown]
  - Growth retardation [Unknown]
